FAERS Safety Report 7593755-9 (Version None)
Quarter: 2011Q3

REPORT INFORMATION
  Report Type: 
  Country: None (occurrence: None)
  Receive Date: 20110706
  Receipt Date: 20110624
  Transmission Date: 20111222
  Serious: Yes (Other)
  Sender: FDA-Public Use
  Company Number: PHHY2011US54072

PATIENT
  Sex: Male
  Weight: 18.2 kg

DRUGS (7)
  1. EXJADE [Suspect]
     Indication: IRON OVERLOAD
     Dosage: 375 MG, QD
     Route: 048
     Dates: start: 20110101, end: 20110401
  2. EXJADE [Suspect]
     Dosage: 250 MG, QD
     Route: 048
     Dates: start: 20110501, end: 20110601
  3. PENICILLIN [Concomitant]
     Indication: PROPHYLAXIS
     Dosage: 260 MG, BID
     Route: 048
  4. FOLIC ACID [Concomitant]
     Indication: SICKLE CELL ANAEMIA
     Dosage: 1 MG DAILY
  5. MIRALAX [Concomitant]
     Indication: CONSTIPATION
     Dosage: 170 MG, PRN
     Route: 048
     Dates: start: 20110415
  6. ACETAMINOPHEN [Concomitant]
     Dosage: UNK
  7. NSAID'S [Concomitant]
     Dosage: UNK

REACTIONS (3)
  - TRANSAMINASES INCREASED [None]
  - ASPARTATE AMINOTRANSFERASE INCREASED [None]
  - ALANINE AMINOTRANSFERASE INCREASED [None]
